FAERS Safety Report 22226470 (Version 1)
Quarter: 2023Q2

REPORT INFORMATION
  Report Type: Spontaneous
  Country: FR (occurrence: FR)
  Receive Date: 20230419
  Receipt Date: 20230419
  Transmission Date: 20230722
  Serious: Yes (Other)
  Sender: FDA-Public Use
  Company Number: FR-ORGANON-O2304FRA001312

PATIENT
  Age: 40 Year
  Sex: Female

DRUGS (2)
  1. BETAMETHASONE DIPROPIONATE\BETAMETHASONE SODIUM PHOSPHATE [Suspect]
     Active Substance: BETAMETHASONE DIPROPIONATE\BETAMETHASONE SODIUM PHOSPHATE
     Dosage: UNK
     Route: 014
  2. IOBITRIDOL [Suspect]
     Active Substance: IOBITRIDOL
     Dosage: UNK

REACTIONS (1)
  - Anaphylactic reaction [Unknown]
